FAERS Safety Report 15340627 (Version 1)
Quarter: 2018Q3

REPORT INFORMATION
  Report Type: Spontaneous
  Country: FR (occurrence: FR)
  Receive Date: 20180831
  Receipt Date: 20180831
  Transmission Date: 20181010
  Serious: Yes (Hospitalization)
  Sender: FDA-Public Use
  Company Number: FR-009507513-1808FRA008767

PATIENT
  Age: 38 Year
  Sex: Male

DRUGS (1)
  1. CELESTENE [Suspect]
     Active Substance: BETAMETHASONE
     Indication: EAR INFECTION
     Dosage: UNK
     Route: 048
     Dates: start: 20180724

REACTIONS (1)
  - Pancreatitis acute [Not Recovered/Not Resolved]

NARRATIVE: CASE EVENT DATE: 20180727
